FAERS Safety Report 9291069 (Version 1)
Quarter: 2012Q4

REPORT INFORMATION
  Report Type: Spontaneous
  Country: US (occurrence: None)
  Receive Date: 20121017
  Receipt Date: 20121017
  Transmission Date: 20130627
  Serious: Yes (Hospitalization, Other)
  Sender: FDA-Public Use
  Company Number: ADR-2008-5068

PATIENT
  Age: 30 Year
  Sex: Male

DRUGS (4)
  1. BACLOFEN [Suspect]
     Indication: SPASTICITY
  2. BACLOFEN [Suspect]
     Indication: SPASTICITY
  3. BUPIVACAINE [Concomitant]
  4. DILAUDID (HYDROMORPHONE) [Concomitant]

REACTIONS (16)
  - Injury [None]
  - Fall [None]
  - Swelling [None]
  - Muscle spasticity [None]
  - Dyskinesia [None]
  - Hyperhidrosis [None]
  - Hypotension [None]
  - Urinary tract infection [None]
  - Mental status changes [None]
  - Device dislocation [None]
  - Device breakage [None]
  - Coma [None]
  - Drug withdrawal syndrome [None]
  - Abdominal pain [None]
  - Autonomic dysreflexia [None]
  - Device-device incompatibility [None]
